FAERS Safety Report 6293586-6 (Version None)
Quarter: 2009Q3

REPORT INFORMATION
  Report Type: 
  Country: None (occurrence: None)
  Receive Date: 20090730
  Receipt Date: 20090720
  Transmission Date: 20100115
  Serious: Yes (Other)
  Sender: FDA-Public Use
  Company Number: 09-094

PATIENT
  Age: 45 Year
  Sex: Female

DRUGS (2)
  1. SENNOSIDES 8.6 MG TABLETS (TIME-CAP LABS, INC.) [Suspect]
     Indication: GASTROINTESTINAL MOTILITY DISORDER
     Dosage: 4-5 TABLETS DAILY
     Dates: start: 20081001, end: 20090201
  2. SENNOSIDES8.6MG/DOCUSATESODIUM50MGTABLETS (TCL) [Suspect]
     Indication: GASTROINTESTINAL MOTILITY DISORDER
     Dosage: 4-5 TABLETS DAILY
     Dates: start: 20081001, end: 20090201

REACTIONS (5)
  - ARTHRALGIA [None]
  - FATIGUE [None]
  - GAIT DISTURBANCE [None]
  - JOINT SWELLING [None]
  - MALAISE [None]
